FAERS Safety Report 9013398 (Version 1)
Quarter: 2013Q1

REPORT INFORMATION
  Report Type: Spontaneous
  Country: US (occurrence: None)
  Receive Date: 20130107
  Receipt Date: 20130107
  Transmission Date: 20140127
  Serious: Yes (Other)
  Sender: FDA-Public Use
  Company Number: None

PATIENT
  Age: 63 Year
  Sex: Female
  Weight: 46.72 kg

DRUGS (1)
  1. AFINITOR [Suspect]
     Dosage: 10MG QD PO
     Route: 048
     Dates: start: 20121213, end: 20121226

REACTIONS (2)
  - Pharyngeal ulceration [None]
  - Eating disorder [None]
